FAERS Safety Report 23979508 (Version 1)
Quarter: 2024Q2

REPORT INFORMATION
  Report Type: Spontaneous
  Country: US (occurrence: US)
  Receive Date: 20240616
  Receipt Date: 20240616
  Transmission Date: 20240716
  Serious: Yes (Other)
  Sender: FDA-Public Use
  Company Number: US-JUBILANT CADISTA PHARMACEUTICALS-2024US000788

PATIENT
  Age: 7 Decade
  Sex: Male

DRUGS (3)
  1. ITRACONAZOLE [Suspect]
     Active Substance: ITRACONAZOLE
     Indication: Pulmonary histoplasmosis
     Dosage: UNK, UNK
  2. AZITHROMYCIN [Concomitant]
     Active Substance: AZITHROMYCIN
     Indication: Antibiotic therapy
     Dosage: UNK, UNK
  3. CEFTRIAXONE [Concomitant]
     Active Substance: CEFTRIAXONE\CEFTRIAXONE SODIUM
     Indication: Antibiotic therapy
     Dosage: UNK, UNK

REACTIONS (3)
  - Ventricular hypokinesia [Recovered/Resolved]
  - Heart failure with reduced ejection fraction [Recovered/Resolved]
  - Left ventricular dysfunction [Recovered/Resolved]
